FAERS Safety Report 7155859-4 (Version None)
Quarter: 2010Q4

REPORT INFORMATION
  Report Type: 
  Country: None (occurrence: None)
  Receive Date: 20101214
  Receipt Date: 20101207
  Transmission Date: 20110411
  Serious: Yes (Life-Threatening, Hospitalization)
  Sender: FDA-Public Use
  Company Number: FR-KINGPHARMUSA00001-K201001475

PATIENT
  Age: 80 Year
  Sex: Female

DRUGS (9)
  1. ALTACE [Suspect]
     Dosage: 7.5 MG, QD
     Route: 048
     Dates: start: 20091212, end: 20100812
  2. ALTACE [Suspect]
     Dosage: 2.5 MG, QD
     Route: 048
     Dates: start: 20090427, end: 20091211
  3. IBUPROFEN [Suspect]
     Dosage: 600 MG, BID
     Route: 048
     Dates: start: 20100304, end: 20100806
  4. IBUPROFEN [Suspect]
     Dosage: 600 MG, TID
     Route: 048
     Dates: start: 20091211, end: 20100303
  5. CITALOPRAM HYDROBROMIDE [Suspect]
     Dosage: 20 MG, QD
     Route: 048
     Dates: start: 20100708, end: 20100812
  6. CITALOPRAM HYDROBROMIDE [Suspect]
     Dosage: 10 MG, QD
     Route: 048
     Dates: start: 20100413, end: 20100707
  7. OMEPRAZOLE [Suspect]
     Dosage: 80 MG, QD
     Route: 048
     Dates: start: 20090427, end: 20100812
  8. HALOPERIDOL [Suspect]
     Dosage: 5 GTT, QD
     Route: 048
     Dates: start: 20100527, end: 20100811
  9. HALOPERIDOL [Suspect]
     Dosage: 10 GTT, QD
     Route: 048
     Dates: start: 20090427, end: 20090526

REACTIONS (7)
  - AZOTAEMIA [None]
  - DEHYDRATION [None]
  - DEPRESSED LEVEL OF CONSCIOUSNESS [None]
  - NAUSEA [None]
  - RENAL FAILURE ACUTE [None]
  - URAEMIC GASTROPATHY [None]
  - VOMITING [None]
